FAERS Safety Report 5472017-X (Version None)
Quarter: 2007Q3

REPORT INFORMATION
  Report Type: 
  Country: None (occurrence: None)
  Receive Date: 20070928
  Receipt Date: 20070917
  Transmission Date: 20080115
  Serious: Yes (Other)
  Sender: FDA-Public Use
  Company Number: US-PFIZER INC-2007077765

PATIENT
  Age: 70 Year
  Sex: Female
  Weight: 90 kg

DRUGS (4)
  1. LYRICA [Suspect]
     Indication: POST HERPETIC NEURALGIA
     Route: 048
  2. TRILEPTAL [Concomitant]
     Route: 048
  3. TYLENOL (CAPLET) [Concomitant]
  4. CRESTOR [Concomitant]

REACTIONS (6)
  - ACTIVITIES OF DAILY LIVING IMPAIRED [None]
  - DIZZINESS [None]
  - OEDEMA PERIPHERAL [None]
  - PAIN [None]
  - POST HERPETIC NEURALGIA [None]
  - VISION BLURRED [None]
